FAERS Safety Report 8726210 (Version 3)
Quarter: 2012Q4

REPORT INFORMATION
  Report Type: 
  Country: US (occurrence: US)
  Receive Date: 20120816
  Receipt Date: 20121005
  Transmission Date: 20130627
  Serious: Yes (Hospitalization)
  Sender: FDA-Public Use
  Company Number: US-UCBSA-063382

PATIENT
  Age: 55 None
  Sex: Male

DRUGS (16)
  1. CIMZIA [Suspect]
     Indication: CROHN^S DISEASE
     Route: 058
     Dates: start: 200901, end: 20120703
  2. COUMADIN [Concomitant]
     Indication: DEEP VEIN THROMBOSIS
  3. GLYBURIDE [Concomitant]
  4. OXYCODONE [Concomitant]
     Indication: OSTEOARTHRITIS
     Dosage: TOATL DAILY DOSE: 120 MG
  5. OXYCODONE [Concomitant]
     Indication: OSTEOARTHRITIS
     Dosage: 30 MG TAB, 1-2 TABS DAILY AS NEEDED
  6. ADVAIR [Concomitant]
  7. ADVAIR [Concomitant]
     Dosage: 250 MCG, 50 MCG POWDER, 1 PUFF 2 TIMES A DAY
  8. GLIPIZIDE [Concomitant]
     Indication: TYPE 2 DIABETES MELLITUS
  9. GLIPIZIDE [Concomitant]
     Indication: TYPE 2 DIABETES MELLITUS
  10. GLIPIZIDE [Concomitant]
     Indication: TYPE 2 DIABETES MELLITUS
     Dosage: 2.5 mg TAB, EXTENDED RELEASE, 1 TAB ONCE DAILY
  11. PREDNISONE [Concomitant]
  12. CEFAZOLIN [Concomitant]
     Dosage: FOR APPROXIMATELY 6 DAYS
  13. COMBIVENT [Concomitant]
     Dosage: 90 MCG-18 MCG/INH, 2 PUFFS FOUR TIMES A DAY
  14. LISINOPRIL [Concomitant]
  15. LASIX [Concomitant]
  16. SIMVASTATIN [Concomitant]
     Dosage: AT BED TIME

REACTIONS (8)
  - Sepsis [Recovered/Resolved]
  - Cellulitis [Recovered/Resolved]
  - Abdominal pain [Recovering/Resolving]
  - Decreased appetite [Recovered/Resolved]
  - Sinus congestion [Unknown]
  - Joint swelling [Unknown]
  - Constipation [Unknown]
  - Skin discolouration [Unknown]
